FAERS Safety Report 16275627 (Version 2)
Quarter: 2019Q3

REPORT INFORMATION
  Report Type: Report from Study
  Country: US (occurrence: US)
  Receive Date: 20190504
  Receipt Date: 20190712
  Transmission Date: 20191004
  Serious: No
  Sender: FDA-Public Use
  Company Number: PHEH2019US018833

PATIENT
  Age: 57 Year
  Sex: Female

DRUGS (2)
  1. COSOPT [Concomitant]
     Active Substance: DORZOLAMIDE HYDROCHLORIDE\TIMOLOL MALEATE
     Indication: PRODUCT USED FOR UNKNOWN INDICATION
     Route: 065
  2. BRIMONIDINE [Suspect]
     Active Substance: BRIMONIDINE TARTRATE
     Dosage: UNK UNK, QD
     Route: 065
     Dates: start: 20170222, end: 20170314

REACTIONS (5)
  - Hypersensitivity [Unknown]
  - Contraindicated product administered [Unknown]
  - Erythema [Unknown]
  - Lip swelling [Unknown]
  - Pruritus [Unknown]

NARRATIVE: CASE EVENT DATE: 201703
